FAERS Safety Report 4852058-3 (Version None)
Quarter: 2005Q4

REPORT INFORMATION
  Report Type: 
  Country: None (occurrence: None)
  Receive Date: 20051209
  Receipt Date: 20051205
  Transmission Date: 20060501
  Serious: Yes (Death, Life-Threatening, Hospitalization)
  Sender: FDA-Public Use
  Company Number: OXYA20050016

PATIENT
  Age: 49 Year
  Sex: Female

DRUGS (1)
  1. OXYCODONE AND ACETAMINOPHEN [Suspect]
     Route: 048
     Dates: start: 20040101, end: 20040101

REACTIONS (14)
  - CEREBRAL ATROPHY [None]
  - CORONARY ARTERY DISEASE [None]
  - DRUG SCREEN POSITIVE [None]
  - GASTROINTESTINAL ISCHAEMIA [None]
  - HEART RATE INCREASED [None]
  - HEPATIC CIRRHOSIS [None]
  - HEPATOSPLENOMEGALY [None]
  - HYPOTENSION [None]
  - INCOHERENT [None]
  - JAUNDICE [None]
  - LUNG INFILTRATION [None]
  - PYREXIA [None]
  - SEPSIS [None]
  - SINUS TACHYCARDIA [None]
